FAERS Safety Report 21259703 (Version 1)
Quarter: 2022Q3

REPORT INFORMATION
  Report Type: Spontaneous
  Country: US (occurrence: None)
  Receive Date: 20220825
  Receipt Date: 20220825
  Transmission Date: 20221027
  Serious: No
  Sender: FDA-Public Use
  Company Number: None

PATIENT
  Sex: Female

DRUGS (1)
  1. LEUCOVORIN CALCIUM [Suspect]
     Active Substance: LEUCOVORIN CALCIUM
     Dosage: 5MG BY MOUTH?  TAKE 1 TABLET BY MOUTH 12-24 HRS AFTER TAKING METHOTREXATE SODIUM
     Route: 048
     Dates: start: 20220422

REACTIONS (1)
  - Therapy non-responder [None]
